FAERS Safety Report 15497625 (Version 1)
Quarter: 2018Q4

REPORT INFORMATION
  Report Type: Spontaneous
  Country: US (occurrence: US)
  Receive Date: 20181005
  Receipt Date: 20181005
  Transmission Date: 20190205
  Serious: No
  Sender: FDA-Public Use
  Company Number: None

PATIENT
  Age: 13 Month
  Sex: Male

DRUGS (1)
  1. ZARXIO [Suspect]
     Active Substance: FILGRASTIM-SNDZ
     Indication: NEUTROPENIA
     Dosage: STRENGTH 300MCG/0.5ML PFS INJ
     Dates: start: 20181004

REACTIONS (1)
  - Product use issue [None]

NARRATIVE: CASE EVENT DATE: 20181004
